FAERS Safety Report 7411393-5 (Version None)
Quarter: 2011Q2

REPORT INFORMATION
  Report Type: 
  Country: None (occurrence: None)
  Receive Date: 20110413
  Receipt Date: 20100922
  Transmission Date: 20111010
  Serious: No
  Sender: FDA-Public Use
  Company Number: US-BRISTOL-MYERS SQUIBB COMPANY-15190069

PATIENT
  Age: 72 Year
  Sex: Male

DRUGS (3)
  1. HYPERTENSION MEDICATION [Concomitant]
  2. CAMPTOSAR [Suspect]
     Route: 042
  3. ERBITUX [Suspect]
     Indication: COLON CANCER METASTATIC
     Dosage: DURATION:MONTHS
     Route: 042

REACTIONS (2)
  - APHAGIA [None]
  - NAUSEA [None]
